FAERS Safety Report 4934253-8 (Version None)
Quarter: 2006Q1

REPORT INFORMATION
  Report Type: 
  Country: None (occurrence: None)
  Receive Date: 20060303
  Receipt Date: 20060223
  Transmission Date: 20060701
  Serious: Yes (Other)
  Sender: FDA-Public Use
  Company Number: 2006027889

PATIENT
  Age: 46 Year
  Sex: Female
  Weight: 131 kg

DRUGS (2)
  1. CELEBREX [Suspect]
     Indication: OSTEOARTHRITIS
     Dosage: 200-400 MG/DAY (200 MG, 1-2 CAPS/ DAY), ORAL
     Route: 048
     Dates: start: 20051209, end: 20051231
  2. LISINOPRIL [Concomitant]

REACTIONS (1)
  - LABYRINTHITIS [None]
